FAERS Safety Report 8295235-4 (Version None)
Quarter: 2012Q2

REPORT INFORMATION
  Report Type: 
  Country: None (occurrence: None)
  Receive Date: 20120418
  Receipt Date: 20120405
  Transmission Date: 20120825
  Serious: Yes (Hospitalization, Other)
  Sender: FDA-Public Use
  Company Number: US-BAXTER-2012BH007468

PATIENT
  Sex: Male

DRUGS (2)
  1. DIANEAL [Suspect]
     Indication: PERITONEAL DIALYSIS
     Route: 033
  2. DIANEAL [Suspect]
     Route: 033

REACTIONS (6)
  - DECREASED APPETITE [None]
  - ASTHENIA [None]
  - CONFUSIONAL STATE [None]
  - CALCIPHYLAXIS [None]
  - WOUND [None]
  - BLOOD PRESSURE DECREASED [None]
